FAERS Safety Report 8444794-7 (Version None)
Quarter: 2012Q2

REPORT INFORMATION
  Report Type: 
  Country: None (occurrence: None)
  Receive Date: 20120323
  Receipt Date: 20111123
  Transmission Date: 20120825
  Serious: Yes (Other)
  Sender: FDA-Public Use
  Company Number: 163-21880-11082172

PATIENT
  Age: 63 Year
  Sex: Female

DRUGS (4)
  1. CETUXIMAB (CETUXIMAB)(UNKNOWN) [Concomitant]
  2. REVLIMID [Suspect]
     Indication: METASTATIC SQUAMOUS CELL CARCINOMA
     Dosage: 25 MG,1 IN 1 D, PO,  20 MG, DAILY, PO,  15 MG, DAILY, PO
     Route: 048
     Dates: start: 20110728
  3. REVLIMID [Suspect]
     Indication: METASTATIC SQUAMOUS CELL CARCINOMA
     Dosage: 25 MG,1 IN 1 D, PO,  20 MG, DAILY, PO,  15 MG, DAILY, PO
     Route: 048
     Dates: start: 20110601
  4. REVLIMID [Suspect]
     Indication: METASTATIC SQUAMOUS CELL CARCINOMA
     Dosage: 25 MG,1 IN 1 D, PO,  20 MG, DAILY, PO,  15 MG, DAILY, PO
     Route: 048
     Dates: start: 20110818, end: 20110908

REACTIONS (1)
  - NEUTROPHIL COUNT DECREASED [None]
